FAERS Safety Report 25714338 (Version 2)
Quarter: 2025Q4

REPORT INFORMATION
  Report Type: Spontaneous
  Country: US (occurrence: US)
  Receive Date: 20250822
  Receipt Date: 20251029
  Transmission Date: 20260118
  Serious: No
  Sender: TAKEDA
  Company Number: US-TAKEDA-2025TUS073677

PATIENT

DRUGS (1)
  1. DEXLANSOPRAZOLE [Suspect]
     Active Substance: DEXLANSOPRAZOLE
     Indication: Product used for unknown indication
     Dosage: UNK

REACTIONS (6)
  - Pain in jaw [Unknown]
  - Gingival disorder [Unknown]
  - Drug effect less than expected [Unknown]
  - Tooth disorder [Unknown]
  - Oropharyngeal pain [Unknown]
  - Nausea [Unknown]
